FAERS Safety Report 8434084-0 (Version None)
Quarter: 2012Q2

REPORT INFORMATION
  Report Type: 
  Country: None (occurrence: None)
  Receive Date: 20120613
  Receipt Date: 20120607
  Transmission Date: 20120825
  Serious: Yes (Hospitalization, Other)
  Sender: FDA-Public Use
  Company Number: US-PFIZER INC-2012129633

PATIENT
  Sex: Female
  Weight: 44.444 kg

DRUGS (9)
  1. SYNTHROID [Suspect]
     Indication: THYROIDECTOMY
     Dosage: 75 UG, DAILY
  2. ATIVAN [Suspect]
     Indication: AGITATION
     Dosage: 50 MG, 1X/DAY
  3. ATIVAN [Suspect]
     Dosage: 0.5 MG, AS NEEDED
  4. OXYCODONE HCL [Suspect]
     Dosage: UNK
  5. CIPROFLOXACIN HCL [Suspect]
     Dosage: UNK
  6. MORPHINE SULFATE [Suspect]
     Dosage: UNK
  7. LYRICA [Suspect]
     Indication: POST HERPETIC NEURALGIA
     Dosage: 50 MG, 2X/DAY
     Route: 048
     Dates: start: 20120517
  8. GABAPENTIN [Suspect]
     Indication: POST HERPETIC NEURALGIA
     Dosage: UNK, 2X/DAY
  9. ATIVAN [Suspect]
     Indication: ANXIETY
     Dosage: 25MG IN MORNING AND 50MG IN EVENING

REACTIONS (18)
  - COLITIS [None]
  - PAIN [None]
  - EMOTIONAL DISORDER [None]
  - FATIGUE [None]
  - INCREASED APPETITE [None]
  - VOMITING [None]
  - HEADACHE [None]
  - THYROID FUNCTION TEST ABNORMAL [None]
  - NERVOUSNESS [None]
  - VISION BLURRED [None]
  - INSOMNIA [None]
  - CANDIDIASIS [None]
  - HALLUCINATION [None]
  - CONVERSION DISORDER [None]
  - RESTLESSNESS [None]
  - DIZZINESS [None]
  - VERTIGO [None]
  - HERPES ZOSTER [None]
